FAERS Safety Report 16756552 (Version 1)
Quarter: 2019Q3

REPORT INFORMATION
  Report Type: Spontaneous
  Country: US (occurrence: US)
  Receive Date: 20190829
  Receipt Date: 20190829
  Transmission Date: 20191005
  Serious: Yes (Death, Disabling)
  Sender: FDA-Public Use
  Company Number: US-TEVA-2019-US-1099725

PATIENT
  Sex: Male

DRUGS (1)
  1. VALSARTAN. [Suspect]
     Active Substance: VALSARTAN
     Indication: HYPERTENSION
     Route: 065

REACTIONS (2)
  - Metastatic gastric cancer [Fatal]
  - Recalled product administered [Unknown]

NARRATIVE: CASE EVENT DATE: 201612
